FAERS Safety Report 17744609 (Version 1)
Quarter: 2020Q2

REPORT INFORMATION
  Report Type: Spontaneous
  Country: US (occurrence: US)
  Receive Date: 20200505
  Receipt Date: 20200505
  Transmission Date: 20200714
  Serious: No
  Sender: FDA-Public Use
  Company Number: US-MYLANLABS-2020M1041967

PATIENT
  Sex: Female
  Weight: 56 kg

DRUGS (1)
  1. WIXELA INHUB [Suspect]
     Active Substance: FLUTICASONE PROPIONATE\SALMETEROL XINAFOATE
     Indication: ASTHMA
     Dosage: 250/50 MICROGRAM BID (TWICE A DAY)
     Route: 055

REACTIONS (3)
  - Incorrect dose administered [Not Recovered/Not Resolved]
  - Product deposit [Not Recovered/Not Resolved]
  - Dysgeusia [Unknown]
